FAERS Safety Report 4698465-3 (Version None)
Quarter: 2005Q2

REPORT INFORMATION
  Report Type: 
  Country: None (occurrence: None)
  Receive Date: 20050621
  Receipt Date: 20050606
  Transmission Date: 20051028
  Serious: Yes (Other)
  Sender: FDA-Public Use
  Company Number: CA_050408049

PATIENT
  Age: 46 Year
  Sex: Male

DRUGS (5)
  1. ZYPREXA [Suspect]
     Indication: BIPOLAR I DISORDER
     Dosage: 10 MG
     Dates: start: 20050204, end: 20050509
  2. ZYPREXA [Suspect]
     Indication: PSYCHOTIC DISORDER
     Dosage: 10 MG
     Dates: start: 20050204, end: 20050509
  3. CLOMIPRAMINE HCL [Concomitant]
  4. LIPITOR [Concomitant]
  5. CAPOTEN (CAPTOPRIL BIOCHEMIE) [Concomitant]

REACTIONS (1)
  - PERICARDIAL EFFUSION [None]
